FAERS Safety Report 4780144-5 (Version None)
Quarter: 2005Q3

REPORT INFORMATION
  Report Type: 
  Country: None (occurrence: None)
  Receive Date: 20050914
  Receipt Date: 20050422
  Transmission Date: 20060218
  Serious: Yes (Hospitalization)
  Sender: FDA-Public Use
  Company Number: 163-20785-05040458

PATIENT
  Age: 72 Year
  Sex: Male
  Weight: 94 kg

DRUGS (2)
  1. THALIDOMIDE OR PLACEBO (THALIDOMIDE) (CAPSULES) [Suspect]
     Indication: PROSTATE CANCER
     Dosage: 200 MG OR PLACEBO, QD TILL PSA PROGRESSION, ORAL
     Route: 048
     Dates: start: 20020624
  2. (L) LEUPROLIDE OR (G) GOSERELIN [Suspect]
     Indication: PROSTATE CANCER
     Dosage: SEE IMAGE
     Dates: start: 20020624

REACTIONS (1)
  - MYOCARDIAL INFARCTION [None]
